FAERS Safety Report 20808248 (Version 1)
Quarter: 2022Q2

REPORT INFORMATION
  Report Type: Spontaneous
  Country: PE (occurrence: PE)
  Receive Date: 20220510
  Receipt Date: 20220510
  Transmission Date: 20220721
  Serious: Yes (Other)
  Sender: FDA-Public Use
  Company Number: PE-SA-SAC20220506001725

PATIENT
  Age: 51 Year
  Sex: Female

DRUGS (14)
  1. ARAVA [Suspect]
     Active Substance: LEFLUNOMIDE
     Indication: Rheumatoid arthritis
     Dosage: UNK
     Route: 048
     Dates: start: 2017, end: 2019
  2. ARAVA [Suspect]
     Active Substance: LEFLUNOMIDE
     Dosage: UNK
     Route: 048
     Dates: start: 202012
  3. ENBREL [Concomitant]
     Active Substance: ETANERCEPT
     Indication: Rheumatoid arthritis
     Dosage: FIRST REGIMEN FROM JUL2016 (BATCH/LOT NUMBER: UNKNOWN) TO JUL2017 AT 50 MG WEEKLY
     Dates: start: 201607, end: 201707
  4. ENBREL [Concomitant]
     Active Substance: ETANERCEPT
     Dosage: SECOND REGIMEN FROM JUL2017 (BATCH/LOT NUMBER: UNKNOWN) TO 16MAR2020 AT 50 MG (50 MG, EVERY 15 DAYS)
     Dates: start: 201707, end: 20200316
  5. ENBREL [Concomitant]
     Active Substance: ETANERCEPT
     Dosage: THIRD REGIMEN FROM 24AUG2020 (BATCH/LOT NUMBER: UNKNOWN) TO OCT2021 AT 50 MG (50 MG, EVERY 15 DAYS),
     Dates: start: 20200824, end: 202110
  6. ENBREL [Concomitant]
     Active Substance: ETANERCEPT
     Dosage: FOURTH REGIMEN FROM OCT2021 (BATCH/LOT NUMBER: UNKNOWN) TO 18FEB2022 AT 50 MG WEEKLY AND FIFTH REGIM
     Dates: start: 202110, end: 20220218
  7. ENBREL [Concomitant]
     Active Substance: ETANERCEPT
     Dosage: 50 MG, QW
     Dates: start: 20220311
  8. PREDNISONE [Concomitant]
     Active Substance: PREDNISONE
     Dosage: UNK
  9. CALCITRIOL [Concomitant]
     Active Substance: CALCITRIOL
     Dosage: UNK
  10. ANTIPAN [Concomitant]
     Dosage: UNK
  11. ARTIFICIAL TEARS [HYPROMELLOSE] [Concomitant]
     Indication: Dry eye
     Dosage: UNK
  12. GLYCERIN [Concomitant]
     Active Substance: GLYCERIN
     Indication: Dry eye
     Dosage: UNK
  13. POLYETHYLENE GLYCOLS [Concomitant]
     Active Substance: POLYETHYLENE GLYCOLS
     Indication: Dry eye
     Dosage: UNK
  14. FOLIC ACID [Concomitant]
     Active Substance: FOLIC ACID

REACTIONS (8)
  - Rheumatoid arthritis [Recovering/Resolving]
  - Arthralgia [Recovering/Resolving]
  - Peripheral swelling [Recovering/Resolving]
  - Depressed mood [Unknown]
  - Arthritis [Recovering/Resolving]
  - Alopecia [Recovered/Resolved]
  - COVID-19 [Recovered/Resolved]
  - Headache [Recovered/Resolved]

NARRATIVE: CASE EVENT DATE: 20200401
